FAERS Safety Report 6415066-7 (Version None)
Quarter: 2009Q4

REPORT INFORMATION
  Report Type: 
  Country: None (occurrence: None)
  Receive Date: 20091021
  Receipt Date: 20091015
  Transmission Date: 20100525
  Serious: Yes (Death, Other)
  Sender: FDA-Public Use
  Company Number: 2009US003803

PATIENT
  Age: 13 Year
  Sex: Male

DRUGS (5)
  1. PROGRAF [Suspect]
     Indication: GRAFT VERSUS HOST DISEASE
  2. MYCOPHENOLATE MOFETIL [Suspect]
     Indication: GRAFT VERSUS HOST DISEASE
  3. PREDNISONE TAB [Suspect]
     Indication: GRAFT VERSUS HOST DISEASE
     Dosage: 2 MG/KG,; 0.4 MG/KG, UID/QD,
  4. BECLOMETHASONE DIPROPIONATE [Suspect]
     Indication: IMMUNOSUPPRESSION
  5. BUDESONIDE [Suspect]
     Indication: IMMUNOSUPPRESSION

REACTIONS (15)
  - ADRENAL INSUFFICIENCY [None]
  - BACTERAEMIA [None]
  - BK VIRUS INFECTION [None]
  - BRONCHOPULMONARY ASPERGILLOSIS [None]
  - EVANS SYNDROME [None]
  - FUNGAL INFECTION [None]
  - HUMAN HERPESVIRUS 6 INFECTION [None]
  - HYPERTENSION [None]
  - HYPOGAMMAGLOBULINAEMIA [None]
  - OEDEMA [None]
  - POLYOMAVIRUS-ASSOCIATED NEPHROPATHY [None]
  - RENAL FAILURE [None]
  - RENAL TUBULAR ATROPHY [None]
  - RENAL TUBULAR NECROSIS [None]
  - TUBULOINTERSTITIAL NEPHRITIS [None]
